FAERS Safety Report 7961180-4 (Version None)
Quarter: 2011Q4

REPORT INFORMATION
  Report Type: 
  Country: None (occurrence: None)
  Receive Date: 20111207
  Receipt Date: 20111205
  Transmission Date: 20120403
  Serious: Yes (Hospitalization, Other)
  Sender: FDA-Public Use
  Company Number: US-PFIZER INC-2011020678

PATIENT
  Sex: Female
  Weight: 65.76 kg

DRUGS (15)
  1. NORVASC [Suspect]
     Dosage: UNK
  2. NEURONTIN [Suspect]
     Indication: NEUROPATHY PERIPHERAL
  3. CALCIUM [Concomitant]
     Dosage: 1200 MG, DAILY
  4. MIRTAZAPINE [Concomitant]
     Indication: SLEEP DISORDER
     Dosage: 45 MG, UNK
  5. PROTONIX [Suspect]
     Dosage: UNK
  6. ZANTAC 150 [Concomitant]
     Indication: HIATUS HERNIA
  7. XANAX [Suspect]
     Indication: ANXIETY
     Dosage: 0.5 MG, 4X/DAY
  8. LIPITOR [Concomitant]
     Indication: BLOOD CHOLESTEROL INCREASED
     Dosage: 40 MG, DAILY
  9. LEVOXYL [Concomitant]
     Indication: THYROID DISORDER
     Dosage: 200 UG, DAILY
  10. LISINOPRIL [Concomitant]
     Indication: HYPERTENSION
     Dosage: ONE AND HALF TABLET OF 30 MG, UNK
  11. ZANTAC 150 [Concomitant]
     Indication: GASTROOESOPHAGEAL REFLUX DISEASE
     Dosage: 150 MG, DAILY
  12. NEURONTIN [Suspect]
     Indication: FIBROMYALGIA
     Dosage: 1600 MG, 2X/DAY
     Dates: start: 20000101
  13. VITAMIN D [Concomitant]
     Dosage: 1000 MG, DAILY
  14. OXYBUTYNIN [Concomitant]
     Indication: URINARY INCONTINENCE
     Dosage: 5 MG, DAILY
  15. METFORMIN [Concomitant]
     Indication: DIABETES MELLITUS
     Dosage: 1000 MG, 2X/DAY

REACTIONS (3)
  - CARDIAC FAILURE CONGESTIVE [None]
  - CARDIAC DISORDER [None]
  - GASTRIC DISORDER [None]
